FAERS Safety Report 25576699 (Version 2)
Quarter: 2025Q3

REPORT INFORMATION
  Report Type: Report from Study
  Country: US (occurrence: US)
  Receive Date: 20250718
  Receipt Date: 20250801
  Transmission Date: 20251021
  Serious: No
  Sender: SUNOVION
  Company Number: US-SUMITOMO PHARMA SWITZERLAND GMBH-2025SPA008227

PATIENT

DRUGS (6)
  1. ORGOVYX [Suspect]
     Active Substance: RELUGOLIX
     Indication: Prostate cancer
     Route: 048
     Dates: start: 20250417, end: 20250417
  2. ORGOVYX [Suspect]
     Active Substance: RELUGOLIX
     Route: 048
     Dates: start: 20250418
  3. ECONAZOLE NITRATE [Concomitant]
     Active Substance: ECONAZOLE NITRATE
     Route: 065
  4. Sudafed pe sinus + pain relief [Concomitant]
     Route: 065
  5. TUMS [Concomitant]
     Active Substance: CALCIUM CARBONATE
     Route: 065
  6. ANTACID [Concomitant]
     Active Substance: ALUMINUM HYDROXIDE\CALCIUM CARBONATE\DIMETHICONE\MAGNESIUM HYDROXIDE
     Route: 065

REACTIONS (5)
  - Muscle spasms [Recovered/Resolved]
  - Arthralgia [Unknown]
  - Weight increased [Unknown]
  - Feeling hot [Unknown]
  - Fatigue [Unknown]
